FAERS Safety Report 12723978 (Version 1)
Quarter: 2016Q3

REPORT INFORMATION
  Report Type: Spontaneous
  Country: US (occurrence: US)
  Receive Date: 20160907
  Receipt Date: 20160907
  Transmission Date: 20161109
  Serious: Yes (Hospitalization)
  Sender: FDA-Public Use
  Company Number: None

PATIENT
  Age: 70 Year
  Sex: Male
  Weight: 80.8 kg

DRUGS (1)
  1. NAPROXEN. [Suspect]
     Active Substance: NAPROXEN
     Indication: PAIN
     Route: 048
     Dates: end: 20160521

REACTIONS (7)
  - Diverticulum [None]
  - Gastric haemorrhage [None]
  - Ileal ulcer [None]
  - Diarrhoea [None]
  - Oesophagitis [None]
  - Barrett^s oesophagus [None]
  - Rectal haemorrhage [None]

NARRATIVE: CASE EVENT DATE: 20160521
